FAERS Safety Report 8169445-0 (Version None)
Quarter: 2012Q1

REPORT INFORMATION
  Report Type: 
  Country: None (occurrence: None)
  Receive Date: 20120222
  Receipt Date: 20120208
  Transmission Date: 20120608
  Serious: Yes (Other)
  Sender: FDA-Public Use
  Company Number: 1202-069

PATIENT
  Age: 68 Year
  Sex: Male

DRUGS (15)
  1. EYLEA [Suspect]
     Indication: AGE-RELATED MACULAR DEGENERATION
     Dosage: INTRAVITREAL
     Dates: start: 20120106
  2. NIASPAN [Concomitant]
  3. MESTINON [Concomitant]
  4. WELCHOL [Concomitant]
  5. MAGNESIUM (MAGNESIUM) [Concomitant]
  6. LOVASTATIN [Concomitant]
  7. NEXIUM [Concomitant]
  8. MULTIVITAMIN (MULTIVITAMIN /00831701/) [Concomitant]
  9. VITAMIN D [Concomitant]
  10. METFORMIN HCL [Concomitant]
  11. BUPROPION XL (BUPROPION) [Concomitant]
  12. ASPIRIN [Concomitant]
  13. FISH OIL (FISH OIL) [Concomitant]
  14. LANTUS [Concomitant]
  15. BYETTA [Concomitant]

REACTIONS (1)
  - CEREBROVASCULAR ACCIDENT [None]
